FAERS Safety Report 18163385 (Version 2)
Quarter: 2020Q3

REPORT INFORMATION
  Report Type: Spontaneous
  Country: US (occurrence: US)
  Receive Date: 20200818
  Receipt Date: 20200824
  Transmission Date: 20201103
  Serious: No
  Sender: FDA-Public Use
  Company Number: US-KYOWAKIRIN-2020BKK013196

PATIENT

DRUGS (1)
  1. CRYSVITA [Suspect]
     Active Substance: BUROSUMAB-TWZA
     Indication: HEREDITARY HYPOPHOSPHATAEMIC RICKETS
     Dosage: 30 MG, 1X/2 WEEKS
     Route: 058
     Dates: start: 20181123

REACTIONS (4)
  - Product dose omission issue [Recovered/Resolved]
  - Pain in extremity [Unknown]
  - Blood phosphorus decreased [Unknown]
  - Pain [Unknown]

NARRATIVE: CASE EVENT DATE: 2020
